FAERS Safety Report 24946115 (Version 1)
Quarter: 2025Q1

REPORT INFORMATION
  Report Type: Spontaneous
  Country: GB (occurrence: GB)
  Receive Date: 20250210
  Receipt Date: 20250210
  Transmission Date: 20250408
  Serious: Yes (Life-Threatening, Other)
  Sender: ALKEM
  Company Number: None

PATIENT
  Age: 15 Year
  Sex: Male
  Weight: 45 kg

DRUGS (2)
  1. LINEZOLID [Suspect]
     Active Substance: LINEZOLID
     Indication: Disseminated tuberculosis
     Dosage: 600 MILLIGRAM, BID (EVERY TWELVE HOURS)
     Route: 065
     Dates: end: 20241019
  2. LINEZOLID [Suspect]
     Active Substance: LINEZOLID
     Indication: Candida infection

REACTIONS (2)
  - Lactic acidosis [Recovered/Resolved]
  - Medication error [Unknown]

NARRATIVE: CASE EVENT DATE: 20241019
